FAERS Safety Report 12885449 (Version 1)
Quarter: 2016Q4

REPORT INFORMATION
  Report Type: Spontaneous
  Country: US (occurrence: US)
  Receive Date: 20161026
  Receipt Date: 20161026
  Transmission Date: 20170207
  Serious: No
  Sender: FDA-Public Use
  Company Number: US-GLAXOSMITHKLINE-US2016GSK153917

PATIENT
  Sex: Female
  Weight: 68.48 kg

DRUGS (5)
  1. BROVANA [Concomitant]
     Active Substance: ARFORMOTEROL TARTRATE
  2. FLUTICASONE PROPIONATE NASAL SPRAY [Suspect]
     Active Substance: FLUTICASONE PROPIONATE
     Indication: RHINITIS ALLERGIC
     Dosage: 4 PUFF(S), QD
     Route: 045
     Dates: start: 201301
  3. PLAVIX [Concomitant]
     Active Substance: CLOPIDOGREL BISULFATE
  4. ALBUTEROL INHALATION POWDER [Suspect]
     Active Substance: ALBUTEROL
     Indication: CHRONIC OBSTRUCTIVE PULMONARY DISEASE
     Dosage: 2 PUFF(S), PRN
     Dates: start: 201301
  5. BUDESONIDE. [Concomitant]
     Active Substance: BUDESONIDE

REACTIONS (5)
  - Malaise [Unknown]
  - Adverse event [Unknown]
  - Vomiting [Unknown]
  - Otorrhoea [Unknown]
  - Rhinorrhoea [Unknown]
